FAERS Safety Report 11523274 (Version 1)
Quarter: 2015Q3

REPORT INFORMATION
  Report Type: Spontaneous
  Country: US (occurrence: US)
  Receive Date: 20150918
  Receipt Date: 20150918
  Transmission Date: 20151125
  Serious: No
  Sender: FDA-Public Use
  Company Number: US-ROCHE-711542

PATIENT
  Age: 47 Year
  Sex: Female

DRUGS (2)
  1. RIBAVIRIN. [Suspect]
     Active Substance: RIBAVIRIN
     Indication: HEPATITIS C
     Dosage: DIVIDED DOSES
     Route: 048
  2. PEGASYS [Suspect]
     Active Substance: PEGINTERFERON ALFA-2A
     Indication: HEPATITIS C
     Dosage: FORM: PRE-FILLED SYRINGE
     Route: 058

REACTIONS (10)
  - Memory impairment [Unknown]
  - Nutritional condition abnormal [Unknown]
  - Diarrhoea [Unknown]
  - Nausea [Unknown]
  - Gastrointestinal mucosal disorder [Unknown]
  - Pyrexia [Not Recovered/Not Resolved]
  - Kidney infection [Unknown]
  - Fungal oesophagitis [Unknown]
  - Migraine [Not Recovered/Not Resolved]
  - Confusional state [Unknown]

NARRATIVE: CASE EVENT DATE: 20100622
